FAERS Safety Report 26045517 (Version 2)
Quarter: 2025Q4

REPORT INFORMATION
  Report Type: Report from Study
  Country: US (occurrence: US)
  Receive Date: 20251114
  Receipt Date: 20251124
  Transmission Date: 20260118
  Serious: No
  Sender: REGENERON
  Company Number: US-REGENERON PHARMACEUTICALS, INC.-2025-178717

PATIENT
  Sex: Female

DRUGS (2)
  1. EYLEA HD [Suspect]
     Active Substance: AFLIBERCEPT
     Indication: Retinal vein occlusion
     Dosage: 8 MG, EVERY 8-16 WEEKS INTO RIGHT EYE, FORMULATION: HD VIAL, STRENGTH: 8 MG/0.07 ML SDV/INJ
  2. EYLEA HD [Suspect]
     Active Substance: AFLIBERCEPT
     Indication: Macular oedema
     Dosage: 8 MG, EVERY 8-16 WEEKS INTO RIGHT EYE, FORMULATION: HD VIAL, STRENGTH: 8 MG/0.07 ML SDV/INJ
     Dates: start: 20251113

REACTIONS (2)
  - Adverse event [Unknown]
  - Product dose omission issue [Recovered/Resolved]

NARRATIVE: CASE EVENT DATE: 20250101
